FAERS Safety Report 24626133 (Version 1)
Quarter: 2024Q4

REPORT INFORMATION
  Report Type: Spontaneous
  Country: US (occurrence: US)
  Receive Date: 20241115
  Receipt Date: 20241115
  Transmission Date: 20250114
  Serious: No
  Sender: MERCK
  Company Number: US-009507513-2411USA004752

PATIENT
  Age: 60 Year
  Sex: Female

DRUGS (12)
  1. BELSOMRA [Suspect]
     Active Substance: SUVOREXANT
     Indication: Insomnia
     Dosage: UNK
     Route: 048
  2. GABAPENTIN [Concomitant]
     Active Substance: GABAPENTIN
  3. AMITRIPTYLINE [Concomitant]
     Active Substance: AMITRIPTYLINE
  4. DOXEPIN [Concomitant]
     Active Substance: DOXEPIN
  5. LORAZEPAM [Concomitant]
     Active Substance: LORAZEPAM
  6. TRAZODONE [Concomitant]
     Active Substance: TRAZODONE HYDROCHLORIDE
  7. DULOXETINE [Concomitant]
     Active Substance: DULOXETINE
  8. CYCLOBENZAPRINE [Concomitant]
     Active Substance: CYCLOBENZAPRINE
  9. TIZANIDINE [Concomitant]
     Active Substance: TIZANIDINE
  10. BACLOFEN [Concomitant]
     Active Substance: BACLOFEN
  11. VALIUM [Concomitant]
     Active Substance: DIAZEPAM
  12. PREDNISONE [Concomitant]
     Active Substance: PREDNISONE

REACTIONS (1)
  - Drug ineffective [Unknown]
